FAERS Safety Report 9309320 (Version 1)
Quarter: 2013Q2

REPORT INFORMATION
  Report Type: Spontaneous
  Country: US (occurrence: US)
  Receive Date: 20130525
  Receipt Date: 20130525
  Transmission Date: 20140414
  Serious: No
  Sender: FDA-Public Use
  Company Number: US-BRISTOL-MYERS SQUIBB COMPANY-18581652

PATIENT
  Age: 50 Year
  Sex: Female

DRUGS (3)
  1. BYDUREON 2MG VIAL + SYRINGE [Suspect]
     Indication: INSULIN-REQUIRING TYPE 2 DIABETES MELLITUS
     Route: 058
     Dates: start: 2012
  2. LEVEMIR [Concomitant]
     Indication: INSULIN-REQUIRING TYPE 2 DIABETES MELLITUS
  3. METFORMIN [Concomitant]
     Indication: INSULIN-REQUIRING TYPE 2 DIABETES MELLITUS

REACTIONS (3)
  - Underdose [Not Recovered/Not Resolved]
  - Drug ineffective [Not Recovered/Not Resolved]
  - Off label use [Not Recovered/Not Resolved]
